FAERS Safety Report 6871317-6 (Version None)
Quarter: 2010Q3

REPORT INFORMATION
  Report Type: 
  Country: None (occurrence: None)
  Receive Date: 20100723
  Receipt Date: 20100709
  Transmission Date: 20110219
  Serious: Yes (Hospitalization, Other)
  Sender: FDA-Public Use
  Company Number: ZA-PFIZER INC-2010083356

PATIENT
  Age: 9 Year
  Sex: Female
  Weight: 17 kg

DRUGS (2)
  1. PHENYTOIN SODIUM CAP [Suspect]
     Dosage: 250 MG, SINGLE (STAT)
     Route: 042
     Dates: start: 20100530, end: 20100530
  2. AUGMENTIN '125' [Concomitant]
     Dosage: UNK
     Route: 042
     Dates: start: 20100527, end: 20100531

REACTIONS (4)
  - CELLULITIS [None]
  - INJECTION SITE INFLAMMATION [None]
  - INJECTION SITE SWELLING [None]
  - LOCAL REACTION [None]
